FAERS Safety Report 8086322-4 (Version None)
Quarter: 2012Q1

REPORT INFORMATION
  Report Type: 
  Country: None (occurrence: None)
  Receive Date: 20120128
  Receipt Date: 20110429
  Transmission Date: 20120608
  Serious: No
  Sender: FDA-Public Use
  Company Number: US-ABBOTT-11P-163-0722618-00

PATIENT
  Age: 30 Year
  Sex: Male

DRUGS (1)
  1. HUMIRA [Suspect]
     Indication: ACNE CONGLOBATA
     Dates: start: 20100916, end: 20101015

REACTIONS (2)
  - ACNE CONGLOBATA [None]
  - DRUG INEFFECTIVE [None]
